FAERS Safety Report 17144810 (Version 1)
Quarter: 2019Q4

REPORT INFORMATION
  Report Type: Spontaneous
  Country: US (occurrence: US)
  Receive Date: 20191212
  Receipt Date: 20191212
  Transmission Date: 20200122
  Serious: No
  Sender: FDA-Public Use
  Company Number: US-NOVEN PHARMACEUTICALS, INC.-US2019000408

PATIENT

DRUGS (9)
  1. MINIVELLE [Suspect]
     Active Substance: ESTRADIOL
     Dosage: 0.1 MG, 2/WK ON SUNDAY AND WEDNESDAY
     Route: 062
     Dates: end: 2019
  2. CALCIUM [Concomitant]
     Active Substance: CALCIUM
     Dosage: UNK, BEDTIME
  3. PROGESTERONE. [Concomitant]
     Active Substance: PROGESTERONE
  4. VITAMIN C [Concomitant]
     Active Substance: ASCORBIC ACID
     Dosage: BEDTIME
  5. SYNTHROID [Concomitant]
     Active Substance: LEVOTHYROXINE SODIUM
     Indication: HYPOTHYROIDISM
  6. MAGNESIUM [Concomitant]
     Active Substance: MAGNESIUM
     Dosage: UNK, BEDTIME
  7. MINIVELLE [Suspect]
     Active Substance: ESTRADIOL
     Dosage: 0.075 MG, UNKNOWN
     Route: 062
     Dates: start: 2019
  8. MINIVELLE [Suspect]
     Active Substance: ESTRADIOL
     Indication: PRODUCT USED FOR UNKNOWN INDICATION
     Dosage: 0.1 MG, 2/WK ON SUNDAY AND WEDNESDAY
     Route: 062
  9. ALLEGRA [Concomitant]
     Active Substance: FEXOFENADINE HYDROCHLORIDE
     Indication: RHINITIS ALLERGIC
     Dosage: UNK, QD

REACTIONS (3)
  - Headache [Recovered/Resolved]
  - Therapy cessation [Recovered/Resolved]
  - Blood pressure increased [Recovered/Resolved]

NARRATIVE: CASE EVENT DATE: 201901
